FAERS Safety Report 23265891 (Version 1)
Quarter: 2023Q4

REPORT INFORMATION
  Report Type: Spontaneous
  Country: US (occurrence: US)
  Receive Date: 20231206
  Receipt Date: 20231206
  Transmission Date: 20240109
  Serious: No
  Sender: FDA-Public Use
  Company Number: US-CELLTRION INC.-2023US020917

PATIENT

DRUGS (1)
  1. TRUXIMA [Suspect]
     Active Substance: RITUXIMAB-ABBS
     Indication: Neuromyelitis optica spectrum disorder
     Dosage: 1000 MILLIGRAM Q 24 WEEKS/EVERY 6 MONTHS FIRST INFUSION 21-NOV-2023
     Route: 042

REACTIONS (1)
  - Off label use [Unknown]
